FAERS Safety Report 7170116-8 (Version None)
Quarter: 2010Q4

REPORT INFORMATION
  Report Type: 
  Country: None (occurrence: None)
  Receive Date: 20101217
  Receipt Date: 20101207
  Transmission Date: 20110411
  Serious: Yes (Other)
  Sender: FDA-Public Use
  Company Number: JP-JNJFOC-20101203108

PATIENT
  Age: 42 Year
  Sex: Female
  Weight: 70 kg

DRUGS (15)
  1. REMICADE [Suspect]
     Indication: RHEUMATOID ARTHRITIS
     Route: 042
  2. REMICADE [Suspect]
     Route: 042
  3. REMICADE [Suspect]
     Route: 042
  4. REMICADE [Suspect]
     Route: 042
  5. REMICADE [Suspect]
     Route: 042
  6. REMICADE [Suspect]
     Route: 042
  7. METHOTREXATE [Concomitant]
     Indication: RHEUMATOID ARTHRITIS
     Route: 048
  8. ISCOTIN [Concomitant]
     Indication: ANTIBIOTIC PROPHYLAXIS
  9. FOLIAMIN [Concomitant]
     Indication: PROPHYLAXIS
     Route: 048
  10. NORVASC [Concomitant]
     Route: 048
  11. MUCOSTA [Concomitant]
     Indication: PROPHYLAXIS
     Route: 048
  12. TAKEPRON [Concomitant]
     Route: 048
  13. LOXOPROFEN [Concomitant]
     Indication: RHEUMATOID ARTHRITIS
     Route: 048
  14. PURSENNID [Concomitant]
     Route: 048
  15. TOCILIZUMAB [Concomitant]

REACTIONS (2)
  - INFUSION RELATED REACTION [None]
  - PALPITATIONS [None]
